FAERS Safety Report 6057097-5 (Version None)
Quarter: 2009Q1

REPORT INFORMATION
  Report Type: 
  Country: None (occurrence: None)
  Receive Date: 20090122
  Receipt Date: 20090122
  Transmission Date: 20090719
  Serious: Yes (Other)
  Sender: FDA-Public Use
  Company Number: None

PATIENT
  Sex: Female

DRUGS (2)
  1. OTRIVIN [Suspect]
     Dosage: UNK, NASAL
     Route: 045
     Dates: start: 19760101, end: 20080501
  2. L-THYROXINE(LEVOTHYROXINE) [Concomitant]

REACTIONS (5)
  - CONCOMITANT DISEASE AGGRAVATED [None]
  - DYSPNOEA [None]
  - INTENTIONAL DRUG MISUSE [None]
  - THROAT TIGHTNESS [None]
  - THYROID DISORDER [None]
